FAERS Safety Report 22291640 (Version 1)
Quarter: 2023Q2

REPORT INFORMATION
  Report Type: Spontaneous
  Country: US (occurrence: US)
  Receive Date: 20230507
  Receipt Date: 20230507
  Transmission Date: 20230722
  Serious: Yes (Other)
  Sender: FDA-Public Use
  Company Number: US-AUROBINDO-AUR-APL-2023-034378

PATIENT
  Age: 74 Year
  Sex: Male

DRUGS (30)
  1. ACETAMINOPHEN [Suspect]
     Active Substance: ACETAMINOPHEN
     Indication: Neuralgia
     Dosage: UNK
     Route: 065
  2. ACETAMINOPHEN [Suspect]
     Active Substance: ACETAMINOPHEN
     Indication: Post herpetic neuralgia
  3. DULOXETINE [Suspect]
     Active Substance: DULOXETINE
     Indication: Neuralgia
     Dosage: UNK
     Route: 065
  4. DULOXETINE [Suspect]
     Active Substance: DULOXETINE
     Indication: Post herpetic neuralgia
  5. GABAPENTIN [Suspect]
     Active Substance: GABAPENTIN
     Indication: Neuralgia
     Dosage: UNK
     Route: 065
  6. GABAPENTIN [Suspect]
     Active Substance: GABAPENTIN
     Indication: Post herpetic neuralgia
  7. LACOSAMIDE [Suspect]
     Active Substance: LACOSAMIDE
     Indication: Neuralgia
     Dosage: UNK
     Route: 065
  8. LACOSAMIDE [Suspect]
     Active Substance: LACOSAMIDE
     Indication: Post herpetic neuralgia
  9. NORTRIPTYLINE [Suspect]
     Active Substance: NORTRIPTYLINE
     Indication: Neuralgia
     Dosage: UNK
     Route: 065
  10. NORTRIPTYLINE [Suspect]
     Active Substance: NORTRIPTYLINE
     Indication: Post herpetic neuralgia
  11. PREGABALIN [Suspect]
     Active Substance: PREGABALIN
     Indication: Neuralgia
     Dosage: UNK
     Route: 065
  12. PREGABALIN [Suspect]
     Active Substance: PREGABALIN
     Indication: Post herpetic neuralgia
  13. BUPIVACAINE [Suspect]
     Active Substance: BUPIVACAINE
     Indication: Neuralgia
     Dosage: UNK
     Route: 065
  14. BUPIVACAINE [Suspect]
     Active Substance: BUPIVACAINE
     Indication: Post herpetic neuralgia
  15. CARBAMAZEPINE [Suspect]
     Active Substance: CARBAMAZEPINE
     Indication: Neuralgia
     Dosage: UNK
     Route: 065
  16. CARBAMAZEPINE [Suspect]
     Active Substance: CARBAMAZEPINE
     Indication: Post herpetic neuralgia
  17. CANNABIDIOL [Suspect]
     Active Substance: CANNABIDIOL
     Indication: Neuralgia
     Dosage: UNK
     Route: 065
  18. CANNABIDIOL [Suspect]
     Active Substance: CANNABIDIOL
     Indication: Post herpetic neuralgia
  19. CLONIDINE [Suspect]
     Active Substance: CLONIDINE
     Indication: Neuralgia
     Dosage: UNK
     Route: 065
  20. CLONIDINE [Suspect]
     Active Substance: CLONIDINE
     Indication: Post herpetic neuralgia
  21. DICLOFENAC [Suspect]
     Active Substance: DICLOFENAC
     Indication: Neuralgia
     Dosage: UNK
     Route: 065
  22. DICLOFENAC [Suspect]
     Active Substance: DICLOFENAC
     Indication: Post herpetic neuralgia
  23. GABAPENTIN [Suspect]
     Active Substance: GABAPENTIN
     Indication: Neuralgia
     Dosage: UNK
     Route: 065
  24. GABAPENTIN [Suspect]
     Active Substance: GABAPENTIN
     Indication: Post herpetic neuralgia
  25. LIDOCAINE [Suspect]
     Active Substance: LIDOCAINE
     Indication: Neuralgia
     Dosage: UNK
     Route: 065
  26. LIDOCAINE [Suspect]
     Active Substance: LIDOCAINE
     Indication: Post herpetic neuralgia
  27. NALTREXONE [Suspect]
     Active Substance: NALTREXONE
     Indication: Neuralgia
     Dosage: UNK
     Route: 065
  28. NALTREXONE [Suspect]
     Active Substance: NALTREXONE
     Indication: Post herpetic neuralgia
  29. KETAMINE [Suspect]
     Active Substance: KETAMINE
     Indication: Neuralgia
     Dosage: UNK
     Route: 045
  30. KETAMINE [Suspect]
     Active Substance: KETAMINE
     Indication: Post herpetic neuralgia

REACTIONS (1)
  - Drug ineffective [Unknown]
